FAERS Safety Report 11587537 (Version 1)
Quarter: 2015Q4

REPORT INFORMATION
  Report Type: Spontaneous
  Country: FR (occurrence: FR)
  Receive Date: 20151001
  Receipt Date: 20151001
  Transmission Date: 20160304
  Serious: Yes (Death)
  Sender: FDA-Public Use
  Company Number: FR-PFIZER INC-2015320035

PATIENT
  Age: 73 Year
  Sex: Female

DRUGS (6)
  1. LASILIX /00032601/ [Suspect]
     Active Substance: FUROSEMIDE
     Dosage: 80 MG, DAILY
     Route: 048
  2. PREVISCAN /00789001/ [Suspect]
     Active Substance: FLUINDIONE
     Route: 048
  3. COVERSYL /00790702/ [Suspect]
     Active Substance: PERINDOPRIL
     Dosage: 5 MG, DAILY
     Route: 048
  4. AMLOR [Suspect]
     Active Substance: AMLODIPINE BESYLATE
     Dosage: 10 MG, DAILY
     Route: 048
  5. CARDENSIEL [Suspect]
     Active Substance: BISOPROLOL FUMARATE
     Dosage: 2.5 MG, DAILY
     Route: 048
  6. TAHOR [Suspect]
     Active Substance: ATORVASTATIN CALCIUM
     Dosage: 20 MG, DAILY
     Route: 048

REACTIONS (2)
  - Pneumonia [Fatal]
  - Cardiac failure [Fatal]

NARRATIVE: CASE EVENT DATE: 20150715
